FAERS Safety Report 4773076-X (Version None)
Quarter: 2005Q3

REPORT INFORMATION
  Report Type: 
  Country: None (occurrence: None)
  Receive Date: 20050919
  Receipt Date: 20030324
  Transmission Date: 20060218
  Serious: Yes (Hospitalization)
  Sender: FDA-Public Use
  Company Number: US-BRISTOL-MYERS SQUIBB COMPANY-12198867

PATIENT
  Age: 70 Year
  Sex: Female

DRUGS (7)
  1. CETUXIMAB [Suspect]
     Indication: NON-SMALL CELL LUNG CANCER
     Route: 042
     Dates: start: 20020108, end: 20020108
  2. CARBOPLATIN [Suspect]
     Indication: NON-SMALL CELL LUNG CANCER
     Route: 042
     Dates: start: 20020108, end: 20020108
  3. GEMCITABINE [Suspect]
     Indication: NON-SMALL CELL LUNG CANCER
     Route: 042
     Dates: start: 20020108, end: 20020108
  4. AMBIEN [Concomitant]
     Indication: INSOMNIA
  5. XANAX [Concomitant]
  6. FLOVENT [Concomitant]
     Dosage: DOSAGE FORM = PUFFS
  7. ALBUTEROL [Concomitant]

REACTIONS (2)
  - BRONCHITIS [None]
  - THROMBOCYTOPENIA [None]
